FAERS Safety Report 22209285 (Version 1)
Quarter: 2023Q2

REPORT INFORMATION
  Report Type: Report from Study
  Country: US (occurrence: US)
  Receive Date: 20230413
  Receipt Date: 20230413
  Transmission Date: 20230722
  Serious: No
  Sender: FDA-Public Use
  Company Number: US-ACADIA PHARMACEUTICALS INC.-ACA-2023-PIM-001165

PATIENT
  Age: 82 Year
  Sex: Female

DRUGS (15)
  1. NUPLAZID [Suspect]
     Active Substance: PIMAVANSERIN TARTRATE
     Indication: Parkinson^s disease psychosis
     Dosage: 34 MILLIGRAM, QD
     Route: 048
  2. AZITHROMYCIN [Concomitant]
     Active Substance: AZITHROMYCIN
  3. BENZONATATE [Concomitant]
     Active Substance: BENZONATATE
  4. CARBIDOPA\LEVODOPA [Concomitant]
     Active Substance: CARBIDOPA\LEVODOPA
  5. DONEPEZIL [Concomitant]
     Active Substance: DONEPEZIL
  6. DOXYCYCLINE HYCLATE [Concomitant]
     Active Substance: DOXYCYCLINE HYCLATE
  7. FAMOTIDINE [Concomitant]
     Active Substance: FAMOTIDINE
  8. HYOSCYAMINE [Concomitant]
     Active Substance: HYOSCYAMINE
  9. LEVOFLOXACIN [Concomitant]
     Active Substance: LEVOFLOXACIN
  10. LORAZEPAM [Concomitant]
     Active Substance: LORAZEPAM
  11. QUETIAPINE [Concomitant]
     Active Substance: QUETIAPINE
  12. SERTRALINE [Concomitant]
     Active Substance: SERTRALINE HYDROCHLORIDE
  13. SUCRALFATE [Concomitant]
     Active Substance: SUCRALFATE
  14. VITAMIN D2 [Concomitant]
     Active Substance: ERGOCALCIFEROL
  15. ZINC [Concomitant]
     Active Substance: ZINC

REACTIONS (2)
  - Product dose omission issue [Not Recovered/Not Resolved]
  - Abnormal behaviour [Not Recovered/Not Resolved]

NARRATIVE: CASE EVENT DATE: 20230301
